FAERS Safety Report 20975198 (Version 1)
Quarter: 2022Q2

REPORT INFORMATION
  Report Type: Spontaneous
  Country: AU (occurrence: None)
  Receive Date: 20220617
  Receipt Date: 20220617
  Transmission Date: 20220721
  Serious: Yes (Death)
  Sender: FDA-Public Use
  Company Number: AU-ROCHE-2838042

PATIENT
  Sex: Female

DRUGS (7)
  1. RITUXIMAB [Suspect]
     Active Substance: RITUXIMAB
     Indication: Chemotherapy
     Dosage: LAST USAGE DATE 20/OCT/2020
     Route: 041
     Dates: start: 20200424
  2. CYCLOPHOSPHAMIDE [Suspect]
     Active Substance: CYCLOPHOSPHAMIDE
     Indication: Chemotherapy
     Dosage: LAST USAGE DATE 20/OCT/2020
     Route: 065
     Dates: start: 20200424, end: 20201020
  3. DOXORUBICIN [Suspect]
     Active Substance: DOXORUBICIN
     Indication: Chemotherapy
     Dosage: LAST USAGE DATE 20/OCT/2020
     Route: 065
     Dates: start: 20200424
  4. VINCRISTINE [Suspect]
     Active Substance: VINCRISTINE
     Indication: Chemotherapy
     Dosage: LAST USAGE DATE 20/OCT/2020
     Route: 065
     Dates: start: 20200424
  5. PREDNISOLONE [Suspect]
     Active Substance: PREDNISOLONE
     Indication: Chemotherapy
     Dosage: LAST USAGE DATE 20/OCT/2020
     Route: 065
     Dates: start: 20200424
  6. GEMCITABINE [Suspect]
     Active Substance: GEMCITABINE
     Indication: Chemotherapy
     Dosage: LAST USAGE DATE  03/MAR/2021
     Route: 065
     Dates: start: 20201106
  7. VINORELBINE [Suspect]
     Active Substance: VINORELBINE TARTRATE
     Indication: Chemotherapy
     Dosage: LAST USAGE DATE  03/MAR/2021
     Route: 065
     Dates: start: 20201106

REACTIONS (3)
  - Treatment failure [Unknown]
  - Disease progression [Fatal]
  - Drug ineffective [Unknown]
